FAERS Safety Report 17852233 (Version 1)
Quarter: 2020Q2

REPORT INFORMATION
  Report Type: Report from Study
  Country: US (occurrence: US)
  Receive Date: 20200602
  Receipt Date: 20200602
  Transmission Date: 20200714
  Serious: Yes (Death, Hospitalization, Other)
  Sender: FDA-Public Use
  Company Number: US-BAYER-2020-100517

PATIENT

DRUGS (2)
  1. CANGRELOR [Suspect]
     Active Substance: CANGRELOR
  2. ASPIRIN 81 MG [Suspect]
     Active Substance: ASPIRIN
     Dosage: UNK

REACTIONS (2)
  - Intraventricular haemorrhage [Fatal]
  - Labelled drug-drug interaction medication error [None]
